FAERS Safety Report 5327082-7 (Version None)
Quarter: 2007Q2

REPORT INFORMATION
  Report Type: 
  Country: None (occurrence: None)
  Receive Date: 20070517
  Receipt Date: 20070510
  Transmission Date: 20071010
  Serious: Yes (Other)
  Sender: FDA-Public Use
  Company Number: PHEH2007US05592

PATIENT
  Age: 45 Year
  Sex: Female

DRUGS (1)
  1. ZELNORM [Suspect]

REACTIONS (5)
  - CARDIAC DISORDER [None]
  - CHEST PAIN [None]
  - DIZZINESS [None]
  - KNEE OPERATION [None]
  - MUSCULOSKELETAL DISCOMFORT [None]
